FAERS Safety Report 13768117 (Version 1)
Quarter: 2017Q3

REPORT INFORMATION
  Report Type: Spontaneous
  Country: US (occurrence: US)
  Receive Date: 20170719
  Receipt Date: 20170719
  Transmission Date: 20171127
  Serious: Yes (Other)
  Sender: FDA-Public Use
  Company Number: PHHY2017US105819

PATIENT
  Age: 75 Year
  Sex: Female

DRUGS (1)
  1. PASIREOTIDE [Suspect]
     Active Substance: PASIREOTIDE
     Indication: MALIGNANT PITUITARY TUMOUR
     Route: 065

REACTIONS (4)
  - Product use in unapproved indication [Unknown]
  - Cellulitis orbital [Unknown]
  - Malignant neoplasm progression [Unknown]
  - Metastases to bone [Unknown]
